FAERS Safety Report 15427257 (Version 2)
Quarter: 2018Q4

REPORT INFORMATION
  Report Type: Spontaneous
  Country: FR (occurrence: FR)
  Receive Date: 20180925
  Receipt Date: 20181005
  Transmission Date: 20190204
  Serious: Yes (Other)
  Sender: FDA-Public Use
  Company Number: PHHY2018FR105709

PATIENT
  Age: 27 Year
  Sex: Male

DRUGS (9)
  1. TACROLIMUS. [Suspect]
     Active Substance: TACROLIMUS
     Indication: LIVER TRANSPLANT
     Dosage: UNK
     Route: 065
  2. CICLOSPORIN [Concomitant]
     Active Substance: CYCLOSPORINE
     Indication: STEM CELL TRANSPLANT
     Dosage: UNK
     Route: 065
  3. BUSULFAN. [Concomitant]
     Active Substance: BUSULFAN
     Indication: PRODUCT USED FOR UNKNOWN INDICATION
     Dosage: 3.2 MG/KG, QD (ONCE DAILY FOR 4 DAYS)
     Route: 065
  4. MYCOPHENOLATE MOFETIL. [Concomitant]
     Active Substance: MYCOPHENOLATE MOFETIL
     Indication: PRODUCT USED FOR UNKNOWN INDICATION
     Dosage: UNK
     Route: 065
  5. CORTISONE [Concomitant]
     Active Substance: CORTISONE\HYDROCORTISONE
     Indication: LIVER TRANSPLANT
     Dosage: UNK
     Route: 065
  6. SAT [Concomitant]
     Indication: PRODUCT USED FOR UNKNOWN INDICATION
     Dosage: 2.5 MG/KG, QD (ONCE DAILY FOR 2 DAYS)
     Route: 065
  7. ENDOXAN [Concomitant]
     Active Substance: CYCLOPHOSPHAMIDE
     Indication: PRODUCT USED FOR UNKNOWN INDICATION
     Dosage: 60 MG/KG, QD(ONCE DAILY FOR 2 DAYS)
     Route: 065
  8. NORADRENALINE [Concomitant]
     Active Substance: NOREPINEPHRINE
     Indication: PRODUCT USED FOR UNKNOWN INDICATION
     Dosage: UNK
     Route: 065
  9. IDARUBICIN [Concomitant]
     Active Substance: IDARUBICIN
     Indication: PRODUCT USED FOR UNKNOWN INDICATION
     Dosage: UNK
     Route: 065

REACTIONS (1)
  - Epstein-Barr virus associated lymphoma [Recovered/Resolved]
